FAERS Safety Report 8888215 (Version 1)
Quarter: 2012Q4

REPORT INFORMATION
  Report Type: 
  Country: US (occurrence: US)
  Receive Date: 20121106
  Receipt Date: 20121106
  Transmission Date: 20130627
  Serious: Yes (Other)
  Sender: FDA-Public Use
  Company Number: US-SANOFI-AVENTIS-2012SA080670

PATIENT
  Age: 69 Year
  Sex: Male

DRUGS (4)
  1. LANTUS SOLOSTAR [Suspect]
     Indication: DIABETES MELLITUS
     Dosage: 12-15 units every evening
     Route: 058
  2. LANTUS SOLOSTAR [Suspect]
     Indication: DIABETES MELLITUS
     Dosage: Dose:20 unit(s)
     Route: 058
  3. SOLOSTAR [Suspect]
     Indication: DIABETES MELLITUS
  4. CORTICOSTEROID NOS [Concomitant]

REACTIONS (2)
  - Prostate cancer [Unknown]
  - Blood glucose increased [Recovering/Resolving]
